FAERS Safety Report 8341774-7 (Version None)
Quarter: 2012Q2

REPORT INFORMATION
  Report Type: 
  Country: None (occurrence: None)
  Receive Date: 20120507
  Receipt Date: 20120423
  Transmission Date: 20120825
  Serious: Yes (Hospitalization)
  Sender: FDA-Public Use
  Company Number: FR-ELI_LILLY_AND_COMPANY-FR201111008076

PATIENT
  Sex: Male

DRUGS (6)
  1. ZYPREXA [Suspect]
     Dosage: 20 MG, QD
     Dates: start: 20110715, end: 20110727
  2. OLANZAPINE [Suspect]
     Dosage: 405 MG, EVERY 2 WEEKS
     Route: 030
     Dates: start: 20110816, end: 20111122
  3. CLONAZEPAM [Concomitant]
     Dosage: UNK
     Dates: start: 20110820
  4. TRIMEPRAZINE TARTRATE [Concomitant]
     Dosage: 20 DROPS IF NEEDED
     Dates: start: 20110713
  5. LOXAPINE HCL [Concomitant]
     Dosage: 50 DROPS IF NEEDED
     Dates: start: 20110713
  6. ZYPREXA [Suspect]
     Dosage: 30 MG, QD
     Dates: start: 20110727, end: 20110825

REACTIONS (12)
  - DIZZINESS [None]
  - ACCIDENTAL OVERDOSE [None]
  - AGGRESSION [None]
  - DYSARTHRIA [None]
  - CONFUSIONAL STATE [None]
  - OVERDOSE [None]
  - SEDATION [None]
  - HYPOTENSION [None]
  - ASTHENIA [None]
  - IMPATIENCE [None]
  - DRUG DOSE OMISSION [None]
  - PRODUCT RECONSTITUTION ISSUE [None]
